FAERS Safety Report 18223543 (Version 3)
Quarter: 2021Q4

REPORT INFORMATION
  Report Type: Spontaneous
  Country: EG (occurrence: EG)
  Receive Date: 20200902
  Receipt Date: 20211214
  Transmission Date: 20220303
  Serious: Yes (Other)
  Sender: FDA-Public Use
  Company Number: EG-PFIZER INC-2020322113

PATIENT
  Age: 77 Year
  Sex: Female

DRUGS (15)
  1. IBRANCE [Suspect]
     Active Substance: PALBOCICLIB
     Indication: Breast cancer metastatic
     Dosage: 125 MG, CYCLIC, (ONCE DAILY FOR 3 WEEKS ON THEN 1 WEEK OFF)
     Route: 048
  2. IBRANCE [Suspect]
     Active Substance: PALBOCICLIB
     Dosage: 100 MG, CYCLIC (ONE TAB DAILY, 3 WEEKS ON 1 WEEK OFF)
     Route: 048
  3. LEVEMIR [Concomitant]
     Active Substance: INSULIN DETEMIR
     Dosage: UNK
  4. NOVORAPID [Concomitant]
     Active Substance: INSULIN ASPART
     Dosage: UNK
  5. DIABETONORM [Concomitant]
     Dosage: UNK
  6. NEBIVOLOL [Concomitant]
     Active Substance: NEBIVOLOL
     Dosage: 5 MG
  7. LASIX [Concomitant]
     Active Substance: FUROSEMIDE
     Dosage: 40 MG
  8. .ALPHA.-LIPOIC ACID [Concomitant]
     Active Substance: .ALPHA.-LIPOIC ACID
     Dosage: 600 MG
  9. BETAHISTINE [Concomitant]
     Active Substance: BETAHISTINE
     Dosage: 16 MG
  10. FEBUXOSTAT [Concomitant]
     Active Substance: FEBUXOSTAT
     Dosage: 80 MG
  11. BON-ONE [Concomitant]
     Dosage: 0.5 MG
  12. LIPITOR [Concomitant]
     Active Substance: ATORVASTATIN CALCIUM
     Dosage: 20 MG
  13. SINGULAIR [Concomitant]
     Active Substance: MONTELUKAST SODIUM
     Dosage: 10 MG
  14. DOWNOPRAZOL [Concomitant]
     Dosage: 40 MG
  15. FASLODEX [Concomitant]
     Active Substance: FULVESTRANT
     Indication: Breast cancer metastatic
     Dosage: UNK

REACTIONS (6)
  - Diabetes mellitus inadequate control [Unknown]
  - White blood cell count decreased [Unknown]
  - Pleural effusion [Unknown]
  - Hypertension [Unknown]
  - Osteopenia [Unknown]
  - Diarrhoea [Unknown]
